FAERS Safety Report 7256227-7 (Version None)
Quarter: 2011Q1

REPORT INFORMATION
  Report Type: 
  Country: None (occurrence: None)
  Receive Date: 20110129
  Receipt Date: 20100614
  Transmission Date: 20110831
  Serious: No
  Sender: FDA-Public Use
  Company Number: US-ABBOTT-10P-163-0627573-00

PATIENT
  Sex: Male
  Weight: 95.34 kg

DRUGS (5)
  1. HUMIRA [Suspect]
     Indication: RHEUMATOID ARTHRITIS
     Route: 058
     Dates: start: 20080101
  2. DICLOFENAC SODIUM [Concomitant]
     Indication: ARTHRITIS
  3. HUMIRA [Suspect]
     Indication: PSORIATIC ARTHROPATHY
  4. ALPRAZOLAM [Concomitant]
     Indication: ANXIETY
  5. LEFLUNOMIDE [Concomitant]
     Indication: PRODUCT USED FOR UNKNOWN INDICATION

REACTIONS (7)
  - TOOTHACHE [None]
  - EXCORIATION [None]
  - TOOTH ABSCESS [None]
  - PAIN IN JAW [None]
  - IMPAIRED HEALING [None]
  - EAR PAIN [None]
  - ARTHRALGIA [None]
